FAERS Safety Report 7588559-7 (Version None)
Quarter: 2011Q3

REPORT INFORMATION
  Report Type: 
  Country: None (occurrence: None)
  Receive Date: 20110705
  Receipt Date: 20110621
  Transmission Date: 20111222
  Serious: Yes (Death, Life-Threatening)
  Sender: FDA-Public Use
  Company Number: DE-EISAI INC-E7867-00225-SPO-DE

PATIENT
  Sex: Male
  Weight: 74 kg

DRUGS (4)
  1. CEFTRIAXON [Concomitant]
     Dates: start: 20110530
  2. DEXAMETHASONE [Concomitant]
  3. KEPPRA [Concomitant]
  4. GLIADEL [Suspect]
     Indication: GLIOBLASTOMA
     Dosage: 8 WAFERS
     Route: 018
     Dates: start: 20110530, end: 20110531

REACTIONS (1)
  - BRAIN OEDEMA [None]
